FAERS Safety Report 24270650 (Version 1)
Quarter: 2024Q3

REPORT INFORMATION
  Report Type: Spontaneous
  Country: AU (occurrence: AU)
  Receive Date: 20240831
  Receipt Date: 20240831
  Transmission Date: 20241016
  Serious: Yes (Hospitalization)
  Sender: AMGEN
  Company Number: AU-AMGEN-AUSSP2024169279

PATIENT
  Age: 3 Day
  Sex: Male

DRUGS (9)
  1. CINACALCET HYDROCHLORIDE [Suspect]
     Active Substance: CINACALCET HYDROCHLORIDE
     Indication: Hyperparathyroidism
     Dosage: 2 MILLIGRAM/KILOGRAM, QD
     Route: 065
  2. CINACALCET HYDROCHLORIDE [Suspect]
     Active Substance: CINACALCET HYDROCHLORIDE
     Indication: Hypercalcaemia
     Dosage: 2 MILLIGRAM/KILOGRAM, QD INCRERASED BY EVERY 8 HOURS
     Route: 065
  3. PREDNISONE [Concomitant]
     Active Substance: PREDNISONE
     Dosage: 2 MILLIGRAM/KILOGRAM, QD
     Route: 065
  4. FUROSEMIDE [Concomitant]
     Active Substance: FUROSEMIDE
     Dosage: 2 MILLIGRAM/KILOGRAM, BID
     Route: 065
  5. FUROSEMIDE [Concomitant]
     Active Substance: FUROSEMIDE
     Dosage: 2 MILLIGRAM/KILOGRAM, BID INCREASED TO SIC HOURLY DOSING
     Route: 065
  6. PAMIDRONATE [Concomitant]
     Active Substance: PAMIDRONATE DISODIUM
     Dosage: 1 MILLIGRAM/KILOGRAM (DILUTED AS 10 MG IN 100 ML OF 0.9 % SODIUM CHLORIDE AND INFUSED OVER 4 HOURS)
     Route: 065
  7. CALCITONIN [Concomitant]
     Active Substance: CALCITONIN
     Dosage: 2 UNITS/KG SUBCUTANEOUS INJECTION 6 HOURLY
     Route: 058
  8. CALCITONIN [Concomitant]
     Active Substance: CALCITONIN
     Dosage: 284 MILLIGRAM/KILOGRAM, QD
     Route: 065
  9. LOCASOL [Concomitant]
     Dosage: 100 MILLILITER, QD
     Route: 065

REACTIONS (6)
  - Hungry bone syndrome [Unknown]
  - Weight gain poor [Unknown]
  - Poor feeding infant [Unknown]
  - Drug resistance [Unknown]
  - Drug ineffective for unapproved indication [Unknown]
  - Off label use [Unknown]
